FAERS Safety Report 19915044 (Version 2)
Quarter: 2023Q1

REPORT INFORMATION
  Report Type: Spontaneous
  Country: RO (occurrence: RO)
  Receive Date: 20211004
  Receipt Date: 20230123
  Transmission Date: 20230418
  Serious: Yes (Other)
  Sender: FDA-Public Use
  Company Number: RO-PFIZER INC-2021574107

PATIENT
  Age: 80 Year
  Sex: Female

DRUGS (4)
  1. LETROZOLE [Suspect]
     Active Substance: LETROZOLE
     Indication: Product used for unknown indication
     Dosage: 2.5 MILLIGRAM
     Route: 065
     Dates: start: 20190412
  2. PALBOCICLIB [Suspect]
     Active Substance: PALBOCICLIB
     Indication: Product used for unknown indication
     Dosage: 75 MILLIGRAM
     Route: 065
  3. PALBOCICLIB [Suspect]
     Active Substance: PALBOCICLIB
     Dosage: 100 MILLIGRAM
     Route: 065
  4. PALBOCICLIB [Suspect]
     Active Substance: PALBOCICLIB
     Dosage: 125 MILLIGRAM, 125 MG D1-D21
     Route: 065
     Dates: start: 20190412

REACTIONS (13)
  - Neoplasm progression [Unknown]
  - Neutropenia [Unknown]
  - Haemoglobin abnormal [Unknown]
  - Anaemia [Unknown]
  - Laryngitis [Unknown]
  - Osteosclerosis [Unknown]
  - Enthesopathy [Unknown]
  - Nausea [Not Recovered/Not Resolved]
  - Weight decreased [Unknown]
  - Asthenia [Recovered/Resolved]
  - Productive cough [Unknown]
  - Osteoarthritis [Unknown]
  - Rash papular [Unknown]

NARRATIVE: CASE EVENT DATE: 20190801
